APPROVED DRUG PRODUCT: TICAR
Active Ingredient: TICARCILLIN DISODIUM
Strength: EQ 3GM BASE/VIAL
Dosage Form/Route: INJECTABLE;INJECTION
Application: A062690 | Product #001
Applicant: GLAXOSMITHKLINE
Approved: Dec 19, 1986 | RLD: No | RS: No | Type: DISCN